FAERS Safety Report 25138493 (Version 1)
Quarter: 2025Q1

REPORT INFORMATION
  Report Type: Spontaneous
  Country: US (occurrence: US)
  Receive Date: 20250330
  Receipt Date: 20250330
  Transmission Date: 20250408
  Serious: Yes (Other)
  Sender: SANOFI AVENTIS
  Company Number: US-SA-2025SA090952

PATIENT
  Sex: Female

DRUGS (1)
  1. DUPIXENT [Suspect]
     Active Substance: DUPILUMAB
     Indication: Asthma
     Dosage: 300 MG, QOW
     Route: 058

REACTIONS (4)
  - Pulmonary oedema [Unknown]
  - Dyspnoea [Unknown]
  - Sinus headache [Unknown]
  - Emphysema [Unknown]
